FAERS Safety Report 8608576-5 (Version None)
Quarter: 2012Q3

REPORT INFORMATION
  Report Type: 
  Country: None (occurrence: None)
  Receive Date: 20120806
  Receipt Date: 20120725
  Transmission Date: 20120928
  Serious: Yes (Hospitalization)
  Sender: FDA-Public Use
  Company Number: DSA_58277_2012

PATIENT
  Sex: Female

DRUGS (5)
  1. DILTIAZEM HYDROCHLORIDE [Suspect]
     Indication: MYOCARDIAL ISCHAEMIA
     Dosage: (60 MG BID ORAL)
     Route: 048
     Dates: start: 20120101, end: 20120505
  2. REMERON [Concomitant]
  3. DERMATRANS [Concomitant]
  4. CARDOREME [Concomitant]
  5. ENALAPRIL MALEATE [Suspect]
     Indication: HYPERTENSION
     Dosage: (5 MG QD ORAL)
     Route: 048
     Dates: start: 20120101, end: 20120505

REACTIONS (4)
  - RENAL FAILURE ACUTE [None]
  - HYPONATRAEMIA [None]
  - ATRIAL FIBRILLATION [None]
  - HYPERKALAEMIA [None]
